FAERS Safety Report 4564834-5 (Version None)
Quarter: 2005Q1

REPORT INFORMATION
  Report Type: 
  Country: None (occurrence: None)
  Receive Date: 20050128
  Receipt Date: 20050124
  Transmission Date: 20050727
  Serious: Yes (Hospitalization)
  Sender: FDA-Public Use
  Company Number: DE-MERCK-0501DEU00236

PATIENT
  Age: 68 Year
  Sex: Male

DRUGS (3)
  1. VIOXX [Suspect]
     Indication: ARTHRALGIA
     Route: 048
     Dates: start: 20011101
  2. VIOXX [Suspect]
     Indication: OSTEOARTHRITIS
     Route: 048
     Dates: start: 20011101
  3. BENAZEPRIL HYDROCHLORIDE AND HYDROCHLOROTHIAZIDE [Concomitant]
     Indication: HYPERTENSION
     Route: 048
     Dates: start: 19980101

REACTIONS (1)
  - TRANSIENT ISCHAEMIC ATTACK [None]
